FAERS Safety Report 4283394-X (Version None)
Quarter: 2004Q1

REPORT INFORMATION
  Report Type: 
  Country: None (occurrence: None)
  Receive Date: 20040129
  Receipt Date: 20040115
  Transmission Date: 20041129
  Serious: Yes (Hospitalization)
  Sender: FDA-Public Use
  Company Number: 2003121296

PATIENT
  Age: 55 Year
  Sex: Male
  Weight: 59.2 kg

DRUGS (2)
  1. UNASYN [Suspect]
     Indication: INFECTION PROPHYLAXIS
     Dosage: 1.5 GRAM, INTRAVENOUS
     Route: 042
     Dates: start: 20031125, end: 20031125
  2. PROPOFOL [Suspect]
     Indication: ANAESTHESIA
     Dosage: 300 MG (ONCE), INTRAVENOUS
     Route: 042
     Dates: start: 20031125, end: 20031125

REACTIONS (11)
  - ALANINE AMINOTRANSFERASE INCREASED [None]
  - ASPARTATE AMINOTRANSFERASE INCREASED [None]
  - BLOOD LACTATE DEHYDROGENASE INCREASED [None]
  - CONDITION AGGRAVATED [None]
  - CYTOMEGALOVIRUS ANTIBODY POSITIVE [None]
  - DERMATITIS EXFOLIATIVE [None]
  - EPSTEIN-BARR VIRUS ANTIGEN POSITIVE [None]
  - OEDEMA PERIPHERAL [None]
  - PHARYNGITIS [None]
  - TOXIC SKIN ERUPTION [None]
  - WHITE BLOOD CELL COUNT INCREASED [None]
